FAERS Safety Report 14163393 (Version 1)
Quarter: 2017Q4

REPORT INFORMATION
  Report Type: Spontaneous
  Country: IT (occurrence: IT)
  Receive Date: 20171106
  Receipt Date: 20171106
  Transmission Date: 20180321
  Serious: Yes (Hospitalization)
  Sender: FDA-Public Use
  Company Number: IT-FRESENIUS KABI-FK201709307

PATIENT
  Age: 79 Year
  Sex: Male
  Weight: 100 kg

DRUGS (1)
  1. MANNITOL (MANUFACTURER UNKNOWN) (MANNITOL) (MANNITOL) [Suspect]
     Active Substance: MANNITOL
     Indication: CATARACT
     Route: 042
     Dates: start: 20171017, end: 20171017

REACTIONS (3)
  - Blister [Recovering/Resolving]
  - Erythema [Recovering/Resolving]
  - Oedema peripheral [Recovering/Resolving]

NARRATIVE: CASE EVENT DATE: 20171017
